FAERS Safety Report 10028867 (Version 4)
Quarter: 2015Q1

REPORT INFORMATION
  Report Type: Report from Study
  Country: DE (occurrence: DE)
  Receive Date: 20140321
  Receipt Date: 20150212
  Transmission Date: 20150720
  Serious: Yes (Death, Hospitalization, Other)
  Sender: FDA-Public Use
  Company Number: DE-BRISTOL-MYERS SQUIBB COMPANY-18771535

PATIENT
  Age: 53 Year
  Sex: Male
  Weight: 70 kg

DRUGS (8)
  1. ONDANSETRON [Concomitant]
     Active Substance: ONDANSETRON
     Indication: PREMEDICATION
     Dosage: UNK
     Route: 065
     Dates: start: 20130204, end: 20130211
  2. FUROSEMIDE. [Concomitant]
     Active Substance: FUROSEMIDE
     Indication: PREMEDICATION
     Dosage: UNK
     Route: 065
     Dates: start: 20130204, end: 20130211
  3. 5-FLUOROURACIL [Concomitant]
     Active Substance: FLUOROURACIL
     Indication: SQUAMOUS CELL CARCINOMA OF HEAD AND NECK
     Dosage: 1000 MG/M2 1 IN 3 WK
     Route: 042
     Dates: start: 20130204, end: 20130402
  4. CORTICOSTEROID [Concomitant]
     Active Substance: CORTICOSTEROID NOS
     Indication: PRODUCT USED FOR UNKNOWN INDICATION
     Dosage: 20 MG, QWK
     Route: 042
     Dates: start: 20130204, end: 20130211
  5. ANTIHISTAMINE DRUGS [Concomitant]
     Indication: PRODUCT USED FOR UNKNOWN INDICATION
     Dosage: UNK UNK, QWK
     Route: 065
     Dates: start: 20130204, end: 20130211
  6. CETUXIMAB [Suspect]
     Active Substance: CETUXIMAB
     Indication: SQUAMOUS CELL CARCINOMA OF THE HYPOPHARYNX
     Dosage: LAST DOSE 465MG ADMINISTERED ON 26MAR2013 (08:30AM-1PM).;250 MG/M2 1 IN 1 WEEK;LAST:02APR2013
     Route: 042
     Dates: start: 20130204, end: 20130402
  7. CARBOPLATIN. [Concomitant]
     Active Substance: CARBOPLATIN
     Indication: SQUAMOUS CELL CARCINOMA OF HEAD AND NECK
     Dosage: 1 DF=560 AUC ; RECENT:02APR2013;
     Route: 042
     Dates: start: 20130204, end: 20130402
  8. RANITIDINE [Concomitant]
     Active Substance: RANITIDINE\RANITIDINE HYDROCHLORIDE
     Indication: PREMEDICATION
     Dosage: UNK
     Route: 065
     Dates: start: 20130204, end: 20130211

REACTIONS (4)
  - White blood cell count decreased [Recovered/Resolved]
  - Sepsis [Fatal]
  - Hypoxia [Fatal]
  - Venous thrombosis limb [Fatal]

NARRATIVE: CASE EVENT DATE: 2013
